FAERS Safety Report 6610992-8 (Version None)
Quarter: 2010Q1

REPORT INFORMATION
  Report Type: 
  Country: None (occurrence: None)
  Receive Date: 20100222
  Receipt Date: 20100207
  Transmission Date: 20100710
  Serious: Yes (Death, Hospitalization)
  Sender: FDA-Public Use
  Company Number: A-CH2010-33219

PATIENT
  Age: 67 Year
  Sex: Male

DRUGS (7)
  1. TRACLEER [Suspect]
     Indication: PULMONARY ARTERIAL HYPERTENSION
     Dosage: ORAL
     Route: 048
     Dates: start: 20080301, end: 20100101
  2. ENALAPRIL MALEATE [Suspect]
  3. SIMOVIL (SIMVASTATIN) [Concomitant]
  4. PHENYTOIN SODIUM CAP [Concomitant]
  5. MONOCORD (ISOSORBIDE MONONITRATE) [Concomitant]
  6. LOPRESSOR [Concomitant]
  7. ASPIRIN [Concomitant]

REACTIONS (8)
  - CARDIAC FAILURE CONGESTIVE [None]
  - DEHYDRATION [None]
  - DISEASE PROGRESSION [None]
  - GASTROENTERITIS [None]
  - METABOLIC DISORDER [None]
  - PULMONARY ARTERIAL HYPERTENSION [None]
  - RENAL FAILURE ACUTE [None]
  - RIGHT VENTRICULAR FAILURE [None]
